FAERS Safety Report 9831487 (Version 1)
Quarter: 2014Q1

REPORT INFORMATION
  Report Type: Spontaneous
  Country: US (occurrence: US)
  Receive Date: 20140121
  Receipt Date: 20140121
  Transmission Date: 20141002
  Serious: Yes (Death)
  Sender: FDA-Public Use
  Company Number: US-JNJFOC-20140110519

PATIENT
  Age: 60 Year
  Sex: Male

DRUGS (1)
  1. SALICYLATE [Suspect]
     Indication: SUICIDE ATTEMPT
     Route: 048

REACTIONS (3)
  - Intentional overdose [Fatal]
  - Tremor [Unknown]
  - Tinnitus [Unknown]
